FAERS Safety Report 14319445 (Version 13)
Quarter: 2018Q3

REPORT INFORMATION
  Report Type: Report from Study
  Country: CZ (occurrence: CZ)
  Receive Date: 20171222
  Receipt Date: 20180920
  Transmission Date: 20181010
  Serious: Yes (Hospitalization, Other)
  Sender: FDA-Public Use
  Company Number: CZ-TEVA-2017-CZ-833446

PATIENT
  Age: 72 Year
  Sex: Male

DRUGS (16)
  1. FLUOROURACIL. [Suspect]
     Active Substance: FLUOROURACIL
     Route: 040
     Dates: start: 20150908, end: 20150908
  2. DEGAN [Concomitant]
     Active Substance: METOCLOPRAMIDE HYDROCHLORIDE
     Indication: PROPHYLAXIS
     Route: 065
     Dates: start: 20150908, end: 20150908
  3. FLUOROURACIL. [Suspect]
     Active Substance: FLUOROURACIL
     Indication: COLORECTAL CANCER METASTATIC
     Dosage: 610 MG, UNK
     Route: 040
     Dates: start: 20150908, end: 20150908
  4. EMEND [Concomitant]
     Active Substance: APREPITANT
     Route: 065
     Dates: start: 20150908, end: 20150927
  5. HELICID [Concomitant]
     Active Substance: OMEPRAZOLE
     Route: 065
     Dates: start: 20150908, end: 20150925
  6. LEUCOVORIN. [Suspect]
     Active Substance: LEUCOVORIN
     Indication: COLORECTAL CANCER METASTATIC
     Dosage: 610 MG, UNK
     Route: 041
     Dates: start: 20150908, end: 20150908
  7. AFLIBERCEPT [Suspect]
     Active Substance: AFLIBERCEPT
     Indication: COLORECTAL CANCER METASTATIC
     Dosage: CYCLICAL
     Route: 041
     Dates: start: 20150908, end: 20150908
  8. AFLIBERCEPT [Suspect]
     Active Substance: AFLIBERCEPT
     Dosage: 275 MG, CYCLIC
     Route: 041
  9. DEGAN [Concomitant]
     Active Substance: METOCLOPRAMIDE HYDROCHLORIDE
     Route: 065
     Dates: start: 20150925, end: 20150925
  10. EMEND [Concomitant]
     Active Substance: APREPITANT
     Indication: PROPHYLAXIS
     Route: 065
     Dates: start: 20150925, end: 20150927
  11. MEGACE [Concomitant]
     Active Substance: MEGESTROL ACETATE
     Indication: PROPHYLAXIS
     Route: 065
     Dates: start: 20150922
  12. LEUCOVORIN. [Suspect]
     Active Substance: LEUCOVORIN
     Indication: RECTAL ADENOCARCINOMA
     Dosage: UNK
     Route: 065
  13. EMEND [Concomitant]
     Active Substance: APREPITANT
     Route: 065
     Dates: start: 20150908, end: 20150910
  14. IRINOTECAN HYDROCHLORIDE TRIHYDRATE [Suspect]
     Active Substance: IRINOTECAN HYDROCHLORIDE
     Indication: COLORECTAL CANCER METASTATIC
     Route: 041
     Dates: start: 20150908, end: 20150908
  15. HELICID [Concomitant]
     Active Substance: OMEPRAZOLE
     Indication: PROPHYLAXIS
     Route: 065
     Dates: start: 20150908, end: 20150908
  16. FLUOROURACIL. [Suspect]
     Active Substance: FLUOROURACIL
     Indication: COLORECTAL CANCER METASTATIC
     Dosage: 3700 MG, UNK
     Route: 041
     Dates: start: 20150908, end: 20150908

REACTIONS (3)
  - Hiccups [Recovered/Resolved]
  - Haematuria [Recovered/Resolved]
  - Off label use [Unknown]

NARRATIVE: CASE EVENT DATE: 20151009
